FAERS Safety Report 7729168-6 (Version None)
Quarter: 2011Q3

REPORT INFORMATION
  Report Type: 
  Country: None (occurrence: None)
  Receive Date: 20110906
  Receipt Date: 20110901
  Transmission Date: 20111222
  Serious: Yes (Other)
  Sender: FDA-Public Use
  Company Number: US-PFIZER INC-2011205914

PATIENT
  Sex: Female
  Weight: 136.05 kg

DRUGS (7)
  1. CHANTIX [Suspect]
     Indication: SMOKING CESSATION THERAPY
     Dosage: 0.5 MG, DAILY
     Route: 048
     Dates: start: 20110101
  2. HYDROCODONE [Concomitant]
     Indication: ARTHRITIS
     Dosage: 750 MG HALF TABLET IN MORNING AND HALF TABLET AT NIGHT
  3. XANAX [Suspect]
     Indication: ANXIETY
     Dosage: 0.5 MG, 2X/DAY
  4. XANAX [Suspect]
     Indication: PANIC ATTACK
     Dosage: 0.5 MG, 3X/DAY
  5. SIMVASTATIN [Concomitant]
     Indication: BLOOD CHOLESTEROL INCREASED
     Dosage: UNK, DAILY
  6. CHANTIX [Suspect]
     Dosage: UNK
     Route: 048
     Dates: start: 20110101
  7. PROPRANOLOL [Concomitant]
     Indication: MIGRAINE
     Dosage: UNK, DAILY

REACTIONS (4)
  - LETHARGY [None]
  - DEPRESSION [None]
  - FATIGUE [None]
  - NERVOUSNESS [None]
